FAERS Safety Report 5969553-6 (Version None)
Quarter: 2008Q4

REPORT INFORMATION
  Report Type: 
  Country: None (occurrence: None)
  Receive Date: 20081126
  Receipt Date: 20081118
  Transmission Date: 20090506
  Serious: Yes (Death, Life-Threatening, Other)
  Sender: FDA-Public Use
  Company Number: GB-AMGEN-UK079734

PATIENT
  Sex: Female
  Weight: 65 kg

DRUGS (21)
  1. KINERET [Suspect]
     Indication: RHEUMATOID ARTHRITIS
     Dates: start: 20030215, end: 20030615
  2. METHOTREXATE [Suspect]
     Route: 065
  3. RITUXIMAB [Suspect]
     Route: 065
  4. REMICADE [Suspect]
     Route: 042
     Dates: start: 20010723, end: 20021007
  5. LITHIUM CARBONATE [Concomitant]
     Route: 065
  6. MORPHINE [Concomitant]
     Route: 048
  7. ACETAMINOPHEN W/ PROPOXYPHENE HCL [Concomitant]
     Route: 065
  8. ISONIAZID [Concomitant]
     Route: 065
  9. HYDROXYCHLOROQUINE SULFATE [Concomitant]
     Route: 065
  10. NITROGLYCERIN [Concomitant]
     Route: 065
  11. CYCLOPHOSPHAMIDE [Concomitant]
     Route: 065
  12. PREDNISONE TAB [Concomitant]
     Route: 065
  13. AZATHIOPRINE [Concomitant]
  14. CYCLOSPORINE [Concomitant]
  15. UNSPECIFIED HORMONE REPLACEMENT THERAPY AGENT [Concomitant]
  16. ILOPROST [Concomitant]
  17. IMMUNE GLOBULIN INTRAVENOUS (HUMAN) [Concomitant]
  18. LEFLUNOMIDE [Concomitant]
  19. PENICILLAMINE [Concomitant]
  20. PLAQUENIL [Concomitant]
  21. PREDNISOLONE [Concomitant]
     Route: 048
     Dates: start: 19930101

REACTIONS (4)
  - ABDOMINAL PAIN [None]
  - METASTASES TO PLEURA [None]
  - OVARIAN CANCER METASTATIC [None]
  - PLEURAL EFFUSION [None]
